FAERS Safety Report 16921067 (Version 1)
Quarter: 2019Q4

REPORT INFORMATION
  Report Type: Report from Study
  Country: US (occurrence: US)
  Receive Date: 20191015
  Receipt Date: 20191015
  Transmission Date: 20200122
  Serious: No
  Sender: FDA-Public Use
  Company Number: US-ALEXION PHARMACEUTICALS INC.-A201915599

PATIENT
  Sex: Female

DRUGS (1)
  1. STRENSIQ [Suspect]
     Active Substance: ASFOTASE ALFA
     Indication: PRODUCT USED FOR UNKNOWN INDICATION
     Dosage: UNK
     Route: 065

REACTIONS (6)
  - Gastrooesophageal sphincter insufficiency [Unknown]
  - Gastrooesophageal reflux disease [Unknown]
  - Pigmentation disorder [Unknown]
  - Weight increased [Unknown]
  - Cough [Unknown]
  - Hiccups [Unknown]
